FAERS Safety Report 6615568-4 (Version None)
Quarter: 2010Q1

REPORT INFORMATION
  Report Type: 
  Country: None (occurrence: None)
  Receive Date: 20100305
  Receipt Date: 20100217
  Transmission Date: 20100710
  Serious: Yes (Other)
  Sender: FDA-Public Use
  Company Number: US-BAYER-200943712NA

PATIENT
  Age: 70 Year
  Sex: Male
  Weight: 76 kg

DRUGS (25)
  1. MAGNEVIST [Suspect]
     Indication: NUCLEAR MAGNETIC RESONANCE IMAGING
     Dosage: AS USED: 60 ML
     Route: 042
     Dates: start: 20010109, end: 20010109
  2. OMNISCAN [Suspect]
     Indication: NUCLEAR MAGNETIC RESONANCE IMAGING
  3. OPTIMARK [Suspect]
     Indication: NUCLEAR MAGNETIC RESONANCE IMAGING
  4. MULTIHANCE [Suspect]
     Indication: NUCLEAR MAGNETIC RESONANCE IMAGING
  5. PROHANCE [Suspect]
     Indication: NUCLEAR MAGNETIC RESONANCE IMAGING
  6. UNSPECIFIED GADOLINIUM BASED CONTRAST AGENT [Suspect]
     Indication: NUCLEAR MAGNETIC RESONANCE IMAGING
     Dosage: AS USED: 18 ML
     Route: 014
     Dates: start: 19991215, end: 19991215
  7. UNSPECIFIED GADOLINIUM BASED CONTRAST AGENT [Suspect]
     Dosage: AS USED: 20 ML
     Route: 042
     Dates: start: 20011101, end: 20011101
  8. UNSPECIFIED GADOLINIUM BASED CONTRAST AGENT [Suspect]
     Dates: start: 20010122, end: 20010122
  9. UNSPECIFIED GADOLINIUM BASED CONTRAST AGENT [Suspect]
     Dates: start: 20030218, end: 20030218
  10. UNSPECIFIED GADOLINIUM BASED CONTRAST AGENT [Suspect]
     Route: 042
     Dates: start: 20021105, end: 20021105
  11. UNSPECIFIED GADOLINIUM BASED CONTRAST AGENT [Suspect]
     Route: 042
     Dates: start: 20021105, end: 20021105
  12. EPOGEN [Concomitant]
     Indication: ANAEMIA
  13. IRON [Concomitant]
  14. NEPHROCAPS [Concomitant]
  15. AMIODARONE [Concomitant]
     Indication: HEART RATE IRREGULAR
  16. SEVELAMER [Concomitant]
  17. CALCIUM CARBONATE AND VITAMIN D [Concomitant]
  18. PHOSLO [Concomitant]
  19. ROCALTROL [Concomitant]
  20. LOPRESSOR [Concomitant]
  21. VERAPAMIL [Concomitant]
  22. ZEMPLAR [Concomitant]
  23. FERRLECIT [Concomitant]
  24. HECTOROL [Concomitant]
  25. HYPAQUE [Concomitant]
     Indication: ARTHROGRAM

REACTIONS (14)
  - ARTHRALGIA [None]
  - ERYTHEMA [None]
  - FATIGUE [None]
  - HYPERKERATOSIS [None]
  - JOINT RANGE OF MOTION DECREASED [None]
  - MUSCULOSKELETAL STIFFNESS [None]
  - NEPHROGENIC SYSTEMIC FIBROSIS [None]
  - PAIN [None]
  - PAIN IN EXTREMITY [None]
  - RASH PAPULAR [None]
  - SKIN DISORDER [None]
  - SKIN HYPERTROPHY [None]
  - SKIN PLAQUE [None]
  - SKIN TIGHTNESS [None]
